FAERS Safety Report 16472829 (Version 2)
Quarter: 2020Q4

REPORT INFORMATION
  Report Type: Other
  Country: CA (occurrence: CA)
  Receive Date: 20190625
  Receipt Date: 20201204
  Transmission Date: 20210113
  Serious: Yes (Other)
  Sender: FDA-Public Use
  Company Number: CA-APOTEX-2019AP016900

PATIENT
  Age: 57 Year
  Sex: Female

DRUGS (3)
  1. GLEEVEC [Suspect]
     Active Substance: IMATINIB MESYLATE
     Indication: CHRONIC MYELOID LEUKAEMIA
     Dosage: UNK
     Route: 048
  2. IMATINIB. [Suspect]
     Active Substance: IMATINIB MESYLATE
     Indication: CHRONIC MYELOID LEUKAEMIA
     Dosage: UNK
     Route: 048
  3. FRAGMIN [Suspect]
     Active Substance: DALTEPARIN SODIUM
     Indication: PRODUCT USED FOR UNKNOWN INDICATION
     Dosage: UNK
     Route: 065

REACTIONS (11)
  - Oesophageal pain [Unknown]
  - Head injury [Unknown]
  - Limb discomfort [Unknown]
  - Pulmonary embolism [Unknown]
  - Platelet count abnormal [Unknown]
  - Abdominal pain upper [Unknown]
  - Anxiety [Unknown]
  - Chest pain [Unknown]
  - Ulcer [Unknown]
  - Wound haemorrhage [Unknown]
  - Syncope [Unknown]
